FAERS Safety Report 10366482 (Version 1)
Quarter: 2014Q3

REPORT INFORMATION
  Report Type: Spontaneous
  Country: US (occurrence: US)
  Receive Date: 20140806
  Receipt Date: 20140806
  Transmission Date: 20150326
  Serious: Yes (Hospitalization, Other)
  Sender: FDA-Public Use
  Company Number: US-B.I. PHARMACEUTICALS,INC./RIDGEFIELD-2014-BI-35404BP

PATIENT
  Age: 77 Year
  Sex: Male

DRUGS (3)
  1. PRADAXA [Suspect]
     Active Substance: DABIGATRAN ETEXILATE MESYLATE
     Indication: CEREBROVASCULAR ACCIDENT PROPHYLAXIS
  2. PLAVIX [Concomitant]
     Active Substance: CLOPIDOGREL BISULFATE
     Route: 065
     Dates: end: 20120724
  3. PRADAXA [Suspect]
     Active Substance: DABIGATRAN ETEXILATE MESYLATE
     Indication: ATRIAL FIBRILLATION
     Dosage: 300 MG
     Route: 048
     Dates: start: 20120514, end: 20120724

REACTIONS (4)
  - Renal failure acute [Recovered/Resolved]
  - Coagulopathy [Unknown]
  - Gastrointestinal haemorrhage [Recovered/Resolved]
  - Haemorrhagic anaemia [Unknown]

NARRATIVE: CASE EVENT DATE: 201207
